FAERS Safety Report 14308179 (Version 1)
Quarter: 2017Q4

REPORT INFORMATION
  Report Type: Spontaneous
  Country: US (occurrence: US)
  Receive Date: 20171220
  Receipt Date: 20171220
  Transmission Date: 20180321
  Serious: Yes (Other)
  Sender: FDA-Public Use
  Company Number: US-LPDUSPRD-20171755

PATIENT
  Age: 24 Year
  Sex: Male

DRUGS (6)
  1. ACETYLCYSTEINE SOLUTION, USP (7604-25) [Suspect]
     Active Substance: ACETYLCYSTEINE
     Dosage: 600 MG/3 ML VIA NEBULIZER Q4H
     Route: 065
  2. ALBUTEROL. [Concomitant]
     Active Substance: ALBUTEROL
     Dosage: 8 PUFFS Q4H
     Route: 065
  3. GLYCINE/SODIUM CHLORIDE/SODIUM HYDROXIDE [Concomitant]
     Dosage: 50 ML PER 1.5 MG OF EPOPROSTEN
     Route: 065
  4. LOW-MOLECULAR-WEIGHT HEPARIN [Concomitant]
     Active Substance: UNSPECIFIED INGREDIENT
     Dosage: UNKNOWN
     Route: 065
  5. EPOPROSTENOL. [Suspect]
     Active Substance: EPOPROSTENOL
     Dosage: 10 NG/KG/MIN (NEBULIZED)
     Route: 065
  6. HEPARIN [Suspect]
     Active Substance: HEPARIN SODIUM
     Dosage: 10 000U/10ML VIA NEBULIZER Q4H
     Route: 065

REACTIONS (3)
  - Off label use [Unknown]
  - Peptic ulcer [Unknown]
  - Gastric haemorrhage [Unknown]
